FAERS Safety Report 24788242 (Version 1)
Quarter: 2024Q4

REPORT INFORMATION
  Report Type: Spontaneous
  Country: US (occurrence: None)
  Receive Date: 20241227
  Receipt Date: 20241227
  Transmission Date: 20250114
  Serious: Yes (Hospitalization)
  Sender: Public
  Company Number: None

PATIENT
  Age: 67 Year
  Sex: Female

DRUGS (15)
  1. NIVESTYM [Suspect]
     Active Substance: FILGRASTIM-AAFI
     Indication: Breast cancer
     Dosage: 480MCG DAILY SUBCUTANEOUS
     Route: 058
     Dates: start: 20241215, end: 20241216
  2. NIVESTYM [Suspect]
     Active Substance: FILGRASTIM-AAFI
     Indication: Neutropenia
  3. DOXORUBICIN [Concomitant]
     Active Substance: DOXORUBICIN
  4. MAGNESIUM GL YCINATE [Concomitant]
  5. BIOTIN [Concomitant]
     Active Substance: BIOTIN
  6. VITAMINS [Concomitant]
     Active Substance: VITAMINS
  7. KEYTRUDA [Concomitant]
     Active Substance: PEMBROLIZUMAB
  8. LOPERAMIDE [Concomitant]
     Active Substance: LOPERAMIDE
  9. BISACODYL [Concomitant]
     Active Substance: BISACODYL
  10. EMLA [Concomitant]
     Active Substance: LIDOCAINE\PRILOCAINE
  11. LEVOTHYROXINE [Concomitant]
     Active Substance: LEVOTHYROXINE
  12. OLANZAPI NE [Concomitant]
  13. ONDANSETRON [Concomitant]
     Active Substance: ONDANSETRON
  14. PROCHLORPERAZINE [Concomitant]
     Active Substance: PROCHLORPERAZINE
  15. VITAMIN D3 [Concomitant]
     Active Substance: CHOLECALCIFEROL

REACTIONS (3)
  - Nausea [None]
  - Vomiting [None]
  - Syncope [None]

NARRATIVE: CASE EVENT DATE: 20241217
